FAERS Safety Report 25431115 (Version 3)
Quarter: 2025Q4

REPORT INFORMATION
  Report Type: Report from Study
  Country: US (occurrence: US)
  Receive Date: 20250612
  Receipt Date: 20251105
  Transmission Date: 20260117
  Serious: Yes (Hospitalization)
  Sender: ABBVIE
  Company Number: US-ABBVIE-6320096

PATIENT
  Age: 67 Year
  Sex: Female

DRUGS (3)
  1. RINVOQ [Suspect]
     Active Substance: UPADACITINIB
     Indication: Rheumatoid arthritis
     Route: 048
     Dates: start: 202412, end: 2025
  2. RINVOQ [Suspect]
     Active Substance: UPADACITINIB
     Indication: Rheumatoid arthritis
     Route: 048
     Dates: start: 20250827
  3. RINVOQ [Suspect]
     Active Substance: UPADACITINIB
     Indication: Rheumatoid arthritis
     Dosage: FIRST ADMIN DATE: 2025
     Route: 048
     Dates: end: 20250810

REACTIONS (4)
  - Pain in extremity [Not Recovered/Not Resolved]
  - Rheumatoid arthritis [Recovering/Resolving]
  - Memory impairment [Not Recovered/Not Resolved]
  - Muscle twitching [Unknown]

NARRATIVE: CASE EVENT DATE: 20250901
